FAERS Safety Report 6643102-1 (Version None)
Quarter: 2010Q1

REPORT INFORMATION
  Report Type: 
  Country: None (occurrence: None)
  Receive Date: 20100319
  Receipt Date: 20100308
  Transmission Date: 20100710
  Serious: Yes (Disabling)
  Sender: FDA-Public Use
  Company Number: PHEH2010US02347

PATIENT
  Age: 52 Year
  Sex: Female

DRUGS (1)
  1. RECLAST [Suspect]
     Indication: OSTEOPOROSIS
     Dosage: 5 MG,ONCE YEARLY
     Route: 042
     Dates: start: 20090205

REACTIONS (4)
  - BACK PAIN [None]
  - BONE PAIN [None]
  - DYSPHAGIA [None]
  - DYSPNOEA [None]
